FAERS Safety Report 4747600-7 (Version None)
Quarter: 2005Q3

REPORT INFORMATION
  Report Type: 
  Country: None (occurrence: None)
  Receive Date: 20050818
  Receipt Date: 20041207
  Transmission Date: 20060218
  Serious: No
  Sender: FDA-Public Use
  Company Number: US-BRISTOL-MYERS SQUIBB COMPANY-12788378

PATIENT
  Age: 83 Year
  Sex: Female

DRUGS (2)
  1. TEQUIN [Suspect]
     Indication: PNEUMONIA
     Route: 042
     Dates: start: 20041206, end: 20041206
  2. DILANTIN [Concomitant]

REACTIONS (1)
  - DRUG LEVEL DECREASED [None]
